FAERS Safety Report 4975731-5 (Version None)
Quarter: 2006Q2

REPORT INFORMATION
  Report Type: 
  Country: None (occurrence: None)
  Receive Date: 20060411
  Receipt Date: 20060329
  Transmission Date: 20061013
  Serious: Yes (Hospitalization)
  Sender: FDA-Public Use
  Company Number: 2006039310

PATIENT
  Age: 41 Year
  Sex: Female

DRUGS (1)
  1. SULFASALAZINE [Suspect]
     Indication: ARTHRALGIA
     Dosage: 2000 MG (500 MG, 4 IN 1 D), ORAL
     Route: 048
     Dates: start: 20060210, end: 20060218

REACTIONS (7)
  - CHOLESTASIS [None]
  - CYTOLYTIC HEPATITIS [None]
  - DISSEMINATED INTRAVASCULAR COAGULATION [None]
  - DRUG RASH WITH EOSINOPHILIA AND SYSTEMIC SYMPTOMS [None]
  - PURPURA [None]
  - PYREXIA [None]
  - VASCULITIS [None]
